FAERS Safety Report 17967775 (Version 1)
Quarter: 2020Q3

REPORT INFORMATION
  Report Type: Report from Study
  Country: FR (occurrence: FR)
  Receive Date: 20200701
  Receipt Date: 20200701
  Transmission Date: 20201103
  Serious: Yes (Hospitalization)
  Sender: FDA-Public Use
  Company Number: FR-DECIPHERA PHARMACEUTICALS-2020FR000050

PATIENT
  Age: 83 Year
  Sex: Female
  Weight: 61.5 kg

DRUGS (16)
  1. DCC?2618 [Suspect]
     Active Substance: RIPRETINIB
     Dosage: 150 MG, QD
     Route: 048
     Dates: start: 20191024, end: 20191113
  2. IMOVANE [Concomitant]
     Active Substance: ZOPICLONE
     Indication: DEPRESSION
     Dosage: 1 CAPSULE, PRN
     Route: 048
     Dates: start: 20191029
  3. DCC?2618 [Suspect]
     Active Substance: RIPRETINIB
     Dosage: 100 MG, QD
     Route: 048
     Dates: start: 20191114, end: 20200106
  4. DCC?2618 [Suspect]
     Active Substance: RIPRETINIB
     Dosage: 100 MG, QD
     Route: 048
     Dates: start: 20200311, end: 20200506
  5. MIANSERINE [Concomitant]
     Active Substance: MIANSERIN HYDROCHLORIDE
     Indication: DEPRESSION
     Dosage: 10 MG, BID
     Route: 048
     Dates: start: 20191101
  6. DCC?2618 [Suspect]
     Active Substance: RIPRETINIB
     Dosage: 150 MG, QD
     Route: 048
     Dates: start: 20200107, end: 20200212
  7. ZOPHREN [Concomitant]
     Active Substance: ONDANSETRON
     Indication: PROPHYLAXIS OF NAUSEA AND VOMITING
     Dosage: 8 MG, PRN
     Route: 048
     Dates: start: 20191023
  8. SALBUTAMOL [Concomitant]
     Active Substance: ALBUTEROL
     Indication: CHRONIC OBSTRUCTIVE PULMONARY DISEASE
     Dosage: 3 PUFF, TID
     Route: 048
     Dates: start: 20191023
  9. LOXEN [Concomitant]
     Indication: HYPERTENSION
     Dosage: 50 MG, QD
     Route: 048
     Dates: start: 20190131
  10. SPASFON [Concomitant]
     Indication: ABDOMINAL PAIN
     Dosage: 6 CAPSULE, PRN
     Route: 048
     Dates: start: 20191023
  11. SYMBICORT [Concomitant]
     Active Substance: BUDESONIDE\FORMOTEROL FUMARATE DIHYDRATE
     Indication: CHRONIC OBSTRUCTIVE PULMONARY DISEASE
     Dosage: 1 PUFF, QD
     Route: 048
  12. AMLODIPINE [Concomitant]
     Active Substance: AMLODIPINE BESYLATE
     Indication: HYPERTENSION
     Dosage: 1 CAPSULE, QD
     Route: 048
     Dates: start: 20191030
  13. DAFALGAN [Concomitant]
     Active Substance: ACETAMINOPHEN
     Indication: ABDOMINAL PAIN
     Dosage: 6 CAPSULE, PRN
     Route: 048
     Dates: start: 20191105
  14. APROVEL [Concomitant]
     Active Substance: IRBESARTAN
     Indication: HYPERTENSION
     Dosage: 150 MG, QD
     Route: 048
     Dates: start: 20180906
  15. DCC?2618 [Suspect]
     Active Substance: RIPRETINIB
     Indication: GASTROINTESTINAL STROMAL TUMOUR
     Dosage: 150 MG, QD
     Route: 048
     Dates: start: 20191009, end: 20191012
  16. SMECTA [Concomitant]
     Active Substance: MONTMORILLONITE
     Indication: DIARRHOEA
     Dosage: 1 BAG, PRN
     Route: 048
     Dates: start: 20191023

REACTIONS (1)
  - Acute kidney injury [Recovered/Resolved with Sequelae]

NARRATIVE: CASE EVENT DATE: 20200226
